FAERS Safety Report 15462189 (Version 2)
Quarter: 2018Q4

REPORT INFORMATION
  Report Type: Spontaneous
  Country: PL (occurrence: PL)
  Receive Date: 20181004
  Receipt Date: 20181010
  Transmission Date: 20190204
  Serious: Yes (Hospitalization, Other)
  Sender: FDA-Public Use
  Company Number: PL-AUROBINDO-AUR-APL-2018-048134

PATIENT
  Age: 5 Year
  Sex: Male

DRUGS (1)
  1. OLANZAPINE. [Suspect]
     Active Substance: OLANZAPINE
     Indication: PRODUCT USED FOR UNKNOWN INDICATION
     Dosage: UNK
     Route: 065

REACTIONS (7)
  - Vitamin D deficiency [Unknown]
  - Gait disturbance [Recovered/Resolved]
  - Drug screen positive [Unknown]
  - Somnolence [Recovered/Resolved]
  - Intentional product misuse [Unknown]
  - Accidental exposure to product by child [Unknown]
  - Encephalitis [Unknown]
